FAERS Safety Report 20947125 (Version 1)
Quarter: 2022Q2

REPORT INFORMATION
  Report Type: Spontaneous
  Country: US (occurrence: US)
  Receive Date: 20220610
  Receipt Date: 20220610
  Transmission Date: 20220720
  Serious: Yes (Hospitalization, Other)
  Sender: FDA-Public Use
  Company Number: US-ALLERGAN-2218254US

PATIENT
  Sex: Female

DRUGS (2)
  1. QULIPTA [Suspect]
     Active Substance: ATOGEPANT
     Indication: Migraine prophylaxis
     Dosage: UNK
  2. QULIPTA [Suspect]
     Active Substance: ATOGEPANT
     Dosage: 60 MG, QD

REACTIONS (7)
  - Loss of consciousness [Recovered/Resolved]
  - Polymenorrhoea [Unknown]
  - Uterine haemorrhage [Unknown]
  - Uterine enlargement [Unknown]
  - Uterine leiomyoma [Not Recovered/Not Resolved]
  - Haemoglobin decreased [Unknown]
  - Migraine [Unknown]

NARRATIVE: CASE EVENT DATE: 20220401
